FAERS Safety Report 8601097-5 (Version None)
Quarter: 2012Q3

REPORT INFORMATION
  Report Type: 
  Country: None (occurrence: None)
  Receive Date: 20120817
  Receipt Date: 20120809
  Transmission Date: 20120928
  Serious: Yes (Hospitalization)
  Sender: FDA-Public Use
  Company Number: US-MYLANLABS-2012S1016400

PATIENT
  Age: 80 Year
  Sex: Female
  Weight: 81.65 kg

DRUGS (5)
  1. DOXAZOSIN MESYLATE [Concomitant]
  2. COENZYME Q10 [Concomitant]
     Dates: end: 20120801
  3. AVAPRO [Concomitant]
     Indication: BLOOD PRESSURE INCREASED
  4. VERAPAMIL HYDROCHLORIDE [Suspect]
     Route: 048
     Dates: start: 20110101
  5. CALCIUM CARBONATE [Concomitant]
     Dates: end: 20120101

REACTIONS (5)
  - RECTAL HAEMORRHAGE [None]
  - HAEMORRHOIDS [None]
  - COLITIS [None]
  - CONSTIPATION [None]
  - AMNESIA [None]
